FAERS Safety Report 17016409 (Version 1)
Quarter: 2019Q4

REPORT INFORMATION
  Report Type: Spontaneous
  Country: CN (occurrence: CN)
  Receive Date: 20191111
  Receipt Date: 20191111
  Transmission Date: 20200122
  Serious: Yes (Other)
  Sender: FDA-Public Use
  Company Number: NVSC2019CN025422

PATIENT
  Age: 51 Year
  Sex: Female
  Weight: 65 kg

DRUGS (3)
  1. DIOVAN [Suspect]
     Active Substance: VALSARTAN
     Indication: HYPERTENSION
     Dosage: 80 MG, QD
     Route: 048
     Dates: start: 20190501, end: 20191030
  2. BENZBROMARONE [Suspect]
     Active Substance: BENZBROMARONE
     Indication: HYPERURICAEMIA
     Dosage: 50 MG, QD
     Route: 048
     Dates: start: 20190501, end: 20191023
  3. FELODIPINE. [Suspect]
     Active Substance: FELODIPINE
     Indication: HYPERTENSION
     Dosage: 5 MG, QD
     Route: 048
     Dates: start: 20190501, end: 20191030

REACTIONS (1)
  - Deafness neurosensory [Recovering/Resolving]

NARRATIVE: CASE EVENT DATE: 20190601
